FAERS Safety Report 14839511 (Version 1)
Quarter: 2018Q2

REPORT INFORMATION
  Report Type: Spontaneous
  Country: US (occurrence: US)
  Receive Date: 20180502
  Receipt Date: 20180502
  Transmission Date: 20180711
  Serious: No
  Sender: FDA-Public Use
  Company Number: US-BIOGEN-2016BI00286589

PATIENT
  Sex: Female

DRUGS (3)
  1. TECFIDERA [Suspect]
     Active Substance: DIMETHYL FUMARATE
     Indication: MULTIPLE SCLEROSIS
     Dosage: MAINTENANCE DOSE
     Route: 048
     Dates: start: 20160830
  2. TECFIDERA [Suspect]
     Active Substance: DIMETHYL FUMARATE
     Route: 048
     Dates: start: 20130819, end: 20130821
  3. TECFIDERA [Suspect]
     Active Substance: DIMETHYL FUMARATE
     Route: 065
     Dates: start: 20130819

REACTIONS (10)
  - Hypoaesthesia [Unknown]
  - Balance disorder [Unknown]
  - Gastric disorder [Unknown]
  - Palpitations [Unknown]
  - Muscular weakness [Unknown]
  - Fatigue [Unknown]
  - Flushing [Unknown]
  - Visual impairment [Recovered/Resolved]
  - Crying [Unknown]
  - Pruritus [Unknown]
